FAERS Safety Report 9675810 (Version 3)
Quarter: 2013Q4

REPORT INFORMATION
  Report Type: Report from Study
  Country: JP (occurrence: JP)
  Receive Date: 20131107
  Receipt Date: 20131219
  Transmission Date: 20140711
  Serious: Yes (Life-Threatening, Other)
  Sender: FDA-Public Use
  Company Number: JP-BRISTOL-MYERS SQUIBB COMPANY-19034800

PATIENT
  Age: 50 Year
  Sex: Female
  Weight: 62.2 kg

DRUGS (1)
  1. SPRYCEL [Suspect]
     Indication: ACUTE LYMPHOCYTIC LEUKAEMIA
     Dosage: 3APR-16APR09 70MG(2/D)?20APR-19JUN09;20AUG-25SP09;8OC-28OCT09(50MG)?29OCT-UNK ;21DC09-ONG(2/2 WKS)
     Route: 048
     Dates: start: 20090403

REACTIONS (3)
  - Malaise [Recovering/Resolving]
  - White blood cell count decreased [Recovering/Resolving]
  - Sepsis [Recovering/Resolving]
